FAERS Safety Report 18955204 (Version 1)
Quarter: 2021Q1

REPORT INFORMATION
  Report Type: Spontaneous
  Country: DE (occurrence: DE)
  Receive Date: 20210301
  Receipt Date: 20210301
  Transmission Date: 20210420
  Serious: Yes (Hospitalization)
  Sender: FDA-Public Use
  Company Number: DE-BAYER-2021-078396

PATIENT
  Age: 9 Month
  Sex: Male
  Weight: 8 kg

DRUGS (3)
  1. VITAMINE D [Concomitant]
     Active Substance: CHOLECALCIFEROL
     Indication: PROPHYLAXIS
     Route: 048
  2. CIPROBAY [CIPROFLOXACIN BETAIN] [Suspect]
     Active Substance: CIPROFLOXACIN
     Dosage: KA
     Route: 048
     Dates: start: 20200328, end: 20200329
  3. COTRIM [Suspect]
     Active Substance: SULFAMETHOXAZOLE\TRIMETHOPRIM
     Indication: PROPHYLAXIS URINARY TRACT INFECTION
     Dosage: DAILY DOSE: 2 ML MILLILITRE(S) EVERY DAYS
     Route: 048
     Dates: end: 20200328

REACTIONS (4)
  - Pyelonephritis [Recovering/Resolving]
  - Infection [Recovering/Resolving]
  - Tubulointerstitial nephritis [Recovering/Resolving]
  - Vomiting [Recovering/Resolving]

NARRATIVE: CASE EVENT DATE: 20200329
